FAERS Safety Report 16803842 (Version 1)
Quarter: 2019Q3

REPORT INFORMATION
  Report Type: Spontaneous
  Country: US (occurrence: US)
  Receive Date: 20190913
  Receipt Date: 20190913
  Transmission Date: 20191005
  Serious: No
  Sender: FDA-Public Use
  Company Number: US-DRREDDYS-USA/USA/19/0113893

PATIENT
  Age: 61 Year
  Sex: Male
  Weight: 96.6 kg

DRUGS (2)
  1. HABITROL [Suspect]
     Active Substance: NICOTINE
     Indication: TOBACCO USER
     Route: 062
  2. LOSARTAN. [Concomitant]
     Active Substance: LOSARTAN
     Indication: PRODUCT USED FOR UNKNOWN INDICATION
     Route: 065

REACTIONS (2)
  - Treatment noncompliance [Unknown]
  - Wrong technique in product usage process [Unknown]
